FAERS Safety Report 9410461 (Version 1)
Quarter: 2013Q3

REPORT INFORMATION
  Report Type: Spontaneous
  Country: US (occurrence: None)
  Receive Date: 20130718
  Receipt Date: 20130718
  Transmission Date: 20140515
  Serious: Yes (Hospitalization)
  Sender: FDA-Public Use
  Company Number: None

PATIENT
  Age: 65 Year
  Sex: Female
  Weight: 70.6 kg

DRUGS (3)
  1. IRINOTECAN [Suspect]
  2. OXALIPLATIN (ELOXATIN) [Suspect]
  3. BEVACIZUMAB (RHUMAB VEGF) (704865) [Suspect]

REACTIONS (9)
  - Nausea [None]
  - Vomiting [None]
  - Diarrhoea [None]
  - Dehydration [None]
  - Decreased appetite [None]
  - Abdominal pain [None]
  - Fatigue [None]
  - Blood sodium decreased [None]
  - Small intestinal obstruction [None]
